FAERS Safety Report 17342348 (Version 1)
Quarter: 2020Q1

REPORT INFORMATION
  Report Type: Spontaneous
  Country: US (occurrence: US)
  Receive Date: 20200129
  Receipt Date: 20200129
  Transmission Date: 20200409
  Serious: No
  Sender: FDA-Public Use
  Company Number: US-ALLERGAN-1925673US

PATIENT
  Age: 6 Decade
  Sex: Female

DRUGS (8)
  1. VALIUM [Concomitant]
     Active Substance: DIAZEPAM
     Dosage: UNK, PRN
     Route: 048
     Dates: start: 20190531
  2. JUVEDERM ULTRA XC [Concomitant]
     Active Substance: HYALURONIC ACID\LIDOCAINE HYDROCHLORIDE
     Indication: SKIN COSMETIC PROCEDURE
     Dosage: 8 SYRINGES
     Dates: start: 20190531, end: 20190531
  3. KYBELLA [Concomitant]
     Active Substance: DEOXYCHOLIC ACID
     Indication: SKIN COSMETIC PROCEDURE
     Dosage: UNK
     Dates: start: 20190531, end: 20190531
  4. BOTOX COSMETIC [Suspect]
     Active Substance: ONABOTULINUMTOXINA
     Dosage: UNK, SINGLE
     Dates: start: 20190531, end: 20190531
  5. JUVEDERM [Concomitant]
     Active Substance: HYALURONIC ACID
     Indication: SKIN COSMETIC PROCEDURE
     Dosage: 1 SYRINGE
     Dates: start: 20190531, end: 20190531
  6. BOTOX COSMETIC [Suspect]
     Active Substance: ONABOTULINUMTOXINA
     Indication: SKIN WRINKLING
     Dosage: 32 UNITS, SINGLE
     Dates: start: 20190531, end: 20190531
  7. BOTOX COSMETIC [Suspect]
     Active Substance: ONABOTULINUMTOXINA
     Indication: SKIN WRINKLING
     Dosage: UNK, SINGLE
     Dates: start: 20190531, end: 20190531
  8. BOTOX COSMETIC [Suspect]
     Active Substance: ONABOTULINUMTOXINA
     Indication: SKIN WRINKLING
     Dosage: UNK, SINGLE
     Dates: start: 20190531, end: 20190531

REACTIONS (4)
  - Product preparation error [Unknown]
  - Dizziness [Recovered/Resolved]
  - Malaise [Recovered/Resolved]
  - Nausea [Recovered/Resolved]

NARRATIVE: CASE EVENT DATE: 20190531
